FAERS Safety Report 6463003-1 (Version None)
Quarter: 2009Q4

REPORT INFORMATION
  Report Type: 
  Country: None (occurrence: None)
  Receive Date: 20091130
  Receipt Date: 20091120
  Transmission Date: 20100525
  Serious: Yes (Hospitalization, Other)
  Sender: FDA-Public Use
  Company Number: US-ABBOTT-09P-163-0609871-00

PATIENT
  Sex: Female
  Weight: 72.64 kg

DRUGS (8)
  1. ZEMPLAR [Suspect]
     Indication: RENAL DISORDER
     Dates: start: 20060101, end: 20090301
  2. UNKNOWN HEART PILL [Concomitant]
     Indication: CARDIAC FAILURE CONGESTIVE
  3. FUROSEMIDE [Concomitant]
     Indication: CARDIAC FAILURE CONGESTIVE
  4. SIMVASTATIN [Concomitant]
     Indication: DRUG USE FOR UNKNOWN INDICATION
  5. METOPROLOL [Concomitant]
     Indication: CARDIAC FAILURE CONGESTIVE
  6. METOPROLOL [Concomitant]
     Indication: HYPERTENSION
  7. LISINOPRIL [Concomitant]
     Indication: HYPERTENSION
  8. SODIUM BICARBONATE IN PLASTIC CONTAINER [Concomitant]
     Indication: RENAL DISORDER

REACTIONS (6)
  - CONDITION AGGRAVATED [None]
  - EPISTAXIS [None]
  - MUSCLE SPASMS [None]
  - PALPITATIONS [None]
  - SWELLING [None]
  - VOMITING [None]
